FAERS Safety Report 14060650 (Version 1)
Quarter: 2017Q4

REPORT INFORMATION
  Report Type: Report from Study
  Country: GB (occurrence: GB)
  Receive Date: 20171007
  Receipt Date: 20171007
  Transmission Date: 20180321
  Serious: Yes (Other)
  Sender: FDA-Public Use
  Company Number: GB-ROCHE-1999137

PATIENT
  Sex: Female

DRUGS (1)
  1. ROACTEMRA [Suspect]
     Active Substance: TOCILIZUMAB
     Indication: RHEUMATOID ARTHRITIS
     Route: 058
     Dates: start: 20170921

REACTIONS (8)
  - Nausea [Unknown]
  - Feeling abnormal [Unknown]
  - Blood pressure increased [Unknown]
  - Loss of consciousness [Unknown]
  - Circulatory collapse [Unknown]
  - Trismus [Unknown]
  - Speech disorder [Unknown]
  - Muscular weakness [Unknown]
